FAERS Safety Report 7487223-2 (Version None)
Quarter: 2011Q2

REPORT INFORMATION
  Report Type: 
  Country: None (occurrence: None)
  Receive Date: 20110518
  Receipt Date: 20110414
  Transmission Date: 20111010
  Serious: Yes (Hospitalization, Other)
  Sender: FDA-Public Use
  Company Number: US-BAYER-201035672NA

PATIENT
  Age: 16 Year
  Sex: Female
  Weight: 54 kg

DRUGS (8)
  1. YAZ [Suspect]
     Indication: PRODUCT USED FOR UNKNOWN INDICATION
     Dosage: UNK UNK, UNK
     Route: 048
     Dates: start: 20080501, end: 20100201
  2. YASMIN [Suspect]
     Indication: PRODUCT USED FOR UNKNOWN INDICATION
     Route: 048
     Dates: start: 20080501, end: 20100101
  3. ZANTAC [Concomitant]
  4. LO/OVRAL [Concomitant]
     Dosage: UNK UNK, CONT
  5. IBUPROFEN [Concomitant]
  6. CLARITIN [Concomitant]
     Dosage: UNK
  7. RANITIDINE [Concomitant]
  8. ADVIL LIQUI-GELS [Concomitant]

REACTIONS (5)
  - CHOLELITHIASIS [None]
  - GALLBLADDER DISORDER [None]
  - PAIN [None]
  - CHOLECYSTITIS [None]
  - ABDOMINAL PAIN [None]
